FAERS Safety Report 5265177-7 (Version None)
Quarter: 2007Q1

REPORT INFORMATION
  Report Type: 
  Country: None (occurrence: None)
  Receive Date: 20061121
  Receipt Date: 20060927
  Transmission Date: 20070707
  Serious: No
  Sender: FDA-Public Use
  Company Number: TPA2006A01686

PATIENT
  Age: 20 Year
  Sex: Female
  Weight: 50.3493 kg

DRUGS (5)
  1. ROZEREM [Suspect]
     Indication: INSOMNIA
     Dosage: 8 MG, HS, PER ORAL
     Route: 048
     Dates: start: 20060925, end: 20060926
  2. DIGOXIN [Concomitant]
  3. ENALAPRIL MALEATE [Concomitant]
  4. COREG [Concomitant]
  5. COUMADIN [Concomitant]

REACTIONS (1)
  - MIDDLE INSOMNIA [None]
